FAERS Safety Report 7055721-1 (Version None)
Quarter: 2010Q4

REPORT INFORMATION
  Report Type: 
  Country: None (occurrence: None)
  Receive Date: 20101021
  Receipt Date: 20101015
  Transmission Date: 20110411
  Serious: Yes (Hospitalization)
  Sender: FDA-Public Use
  Company Number: CN-B.I. PHARMACEUTICALS,INC./RIDGEFIELD-2010-CS-00843CS

PATIENT
  Sex: Male
  Weight: 70.5 kg

DRUGS (5)
  1. PRAMIPEXOLE [Suspect]
     Indication: PARKINSON'S DISEASE
     Dosage: 0.75 MG
     Route: 048
     Dates: start: 20100924, end: 20100925
  2. PRAMIPEXOLE [Suspect]
     Dosage: 0.375 MG
     Route: 048
     Dates: start: 20100917, end: 20100923
  3. PRAMIPEXOLE [Suspect]
     Dosage: 0.375 MG
     Route: 048
     Dates: start: 20100927
  4. METOPROLOL TARTRATE [Concomitant]
     Indication: HYPERTENSION
     Dosage: 25 MG
     Route: 048
     Dates: start: 20010901
  5. CARDUXA [Concomitant]
     Indication: BENIGN PROSTATIC HYPERPLASIA
     Dosage: 4 MG
     Route: 048
     Dates: start: 20070601

REACTIONS (1)
  - TRANSIENT ISCHAEMIC ATTACK [None]
